FAERS Safety Report 24816350 (Version 1)
Quarter: 2025Q1

REPORT INFORMATION
  Report Type: Spontaneous
  Country: US (occurrence: US)
  Receive Date: 20250107
  Receipt Date: 20250107
  Transmission Date: 20250409
  Serious: Yes (Other)
  Sender: PFIZER
  Company Number: US-PFIZER INC-PV202500000014

PATIENT
  Age: 56 Year
  Sex: Male

DRUGS (2)
  1. KETAMINE HYDROCHLORIDE [Suspect]
     Active Substance: KETAMINE HYDROCHLORIDE
     Indication: Post-traumatic stress disorder
     Dates: start: 20210419, end: 20220208
  2. KETAMINE HYDROCHLORIDE [Suspect]
     Active Substance: KETAMINE HYDROCHLORIDE
     Indication: Major depression

REACTIONS (1)
  - Cognitive disorder [Not Recovered/Not Resolved]
